FAERS Safety Report 17154038 (Version 2)
Quarter: 2020Q1

REPORT INFORMATION
  Report Type: Report from Study
  Country: US (occurrence: US)
  Receive Date: 20191213
  Receipt Date: 20200113
  Transmission Date: 20200409
  Serious: Yes (Other)
  Sender: FDA-Public Use
  Company Number: US-BIOGEN-2019BI00817198

PATIENT
  Sex: Female

DRUGS (6)
  1. TECFIDERA [Suspect]
     Active Substance: DIMETHYL FUMARATE
     Route: 065
     Dates: start: 20191002
  2. TECFIDERA [Suspect]
     Active Substance: DIMETHYL FUMARATE
     Dosage: TOOK THIS DOSE FOR ONE WEEK
     Route: 048
  3. TECFIDERA [Suspect]
     Active Substance: DIMETHYL FUMARATE
     Indication: MULTIPLE SCLEROSIS
     Dosage: TOOK THIS DOSE FOR ONE WEEK
     Route: 048
  4. TECFIDERA [Suspect]
     Active Substance: DIMETHYL FUMARATE
     Dosage: STARTED THE THIRD WEEK
     Route: 048
  5. TECFIDERA [Suspect]
     Active Substance: DIMETHYL FUMARATE
     Route: 065
  6. PREDNISONE. [Suspect]
     Active Substance: PREDNISONE
     Indication: MULTIPLE SCLEROSIS RELAPSE
     Route: 065
     Dates: start: 20191203

REACTIONS (16)
  - Multiple sclerosis relapse [Not Recovered/Not Resolved]
  - Prescribed underdose [Unknown]
  - Fear [Unknown]
  - Sinusitis [Not Recovered/Not Resolved]
  - Skin burning sensation [Unknown]
  - Abdominal pain upper [Not Recovered/Not Resolved]
  - Photophobia [Not Recovered/Not Resolved]
  - Gait disturbance [Unknown]
  - Pruritus [Unknown]
  - Headache [Not Recovered/Not Resolved]
  - Influenza like illness [Unknown]
  - Hot flush [Not Recovered/Not Resolved]
  - Memory impairment [Not Recovered/Not Resolved]
  - Ligament sprain [Recovered/Resolved]
  - Arthralgia [Unknown]
  - Stress [Unknown]
